FAERS Safety Report 6402369-5 (Version None)
Quarter: 2009Q4

REPORT INFORMATION
  Report Type: 
  Country: None (occurrence: None)
  Receive Date: 20091015
  Receipt Date: 20091005
  Transmission Date: 20100525
  Serious: Yes (Other)
  Sender: FDA-Public Use
  Company Number: JP-ROCHE-662394

PATIENT
  Age: 79 Year
  Sex: Female

DRUGS (2)
  1. ROCEPHIN [Suspect]
     Indication: CHOLECYSTITIS
     Dosage: ROUTE: INTRAVENOUS (NOT OTHERWISE SPECIFIED)
     Route: 042
  2. ROCEPHIN [Suspect]
     Dosage: DOSE DECREASED
     Route: 042

REACTIONS (3)
  - ALTERED STATE OF CONSCIOUSNESS [None]
  - CHOREOATHETOSIS [None]
  - DELIRIUM [None]
